FAERS Safety Report 12989309 (Version 1)
Quarter: 2016Q4

REPORT INFORMATION
  Report Type: Report from Study
  Country: US (occurrence: US)
  Receive Date: 20161201
  Receipt Date: 20161201
  Transmission Date: 20170207
  Serious: Yes (Other)
  Sender: FDA-Public Use
  Company Number: US-CLINIGEN GROUP PLC/ CLINIGEN HEALTHCARE LTD-E2B_00001054

PATIENT
  Age: 59 Year
  Sex: Female
  Weight: 49.4 kg

DRUGS (11)
  1. RADIATION THERAPY [Concomitant]
     Active Substance: RADIATION THERAPY
     Indication: RADIOTHERAPY
  2. ETHYOL [Suspect]
     Active Substance: AMIFOSTINE
     Route: 058
     Dates: start: 20031028, end: 20031107
  3. ETHYOL [Suspect]
     Active Substance: AMIFOSTINE
     Indication: CHEMOTHERAPY
     Route: 058
     Dates: start: 20031028, end: 20031107
  4. ETHYOL [Suspect]
     Active Substance: AMIFOSTINE
     Route: 058
     Dates: start: 20031117, end: 20031117
  5. TAXOL [Concomitant]
     Active Substance: PACLITAXEL
     Indication: CHEMOTHERAPY
     Dates: start: 20031029, end: 20031217
  6. CARBOPLATIN. [Concomitant]
     Active Substance: CARBOPLATIN
     Indication: CHEMOTHERAPY
     Dates: start: 20031029, end: 20031217
  7. ALBUTEROL. [Concomitant]
     Active Substance: ALBUTEROL
  8. THEOPHYLLINE [Concomitant]
     Active Substance: THEOPHYLLINE ANHYDROUS
     Route: 048
  9. KYTRIL [Concomitant]
     Active Substance: GRANISETRON HYDROCHLORIDE
     Indication: PROPHYLAXIS OF NAUSEA AND VOMITING
     Dates: start: 20031028, end: 20031118
  10. ETHYOL [Suspect]
     Active Substance: AMIFOSTINE
     Route: 058
     Dates: start: 20031117, end: 20031117
  11. DECADRON [Concomitant]
     Active Substance: DEXAMETHASONE
     Indication: PREMEDICATION
     Dates: start: 20031029, end: 20031217

REACTIONS (9)
  - Malignant pleural effusion [Unknown]
  - Circulatory collapse [Unknown]
  - Pruritus [Unknown]
  - Lung consolidation [Unknown]
  - Injection site reaction [Recovered/Resolved]
  - Hypotension [Recovered/Resolved]
  - Lymphadenopathy mediastinal [Unknown]
  - Rash [Recovered/Resolved]
  - Injection site erythema [Unknown]

NARRATIVE: CASE EVENT DATE: 20031028
